FAERS Safety Report 9588615 (Version 1)
Quarter: 2013Q4

REPORT INFORMATION
  Report Type: Spontaneous
  Country: US (occurrence: US)
  Receive Date: 20131003
  Receipt Date: 20131003
  Transmission Date: 20140711
  Serious: No
  Sender: FDA-Public Use
  Company Number: US-AMGEN-USASP2012065193

PATIENT
  Sex: Male
  Weight: 86.17 kg

DRUGS (8)
  1. ENBREL [Suspect]
     Indication: RHEUMATOID ARTHRITIS
     Dosage: 50 MG/ML, QWK
     Route: 058
  2. RESTASIS [Concomitant]
     Dosage: UNK
  3. PLAQUENIL                          /00072602/ [Concomitant]
     Dosage: 200 MG, UNK
  4. CELEBREX [Concomitant]
     Dosage: 100 MG, UNK
  5. METHOTREXATE [Concomitant]
     Dosage: 2.5 MG, UNK
  6. PREDNISONE [Concomitant]
     Dosage: 2.5 MG, UNK
  7. CALCIUM +D                         /00944201/ [Concomitant]
     Dosage: UNK
  8. ACTEMRA [Concomitant]
     Dosage: UNK

REACTIONS (1)
  - Injection site pain [Unknown]
